FAERS Safety Report 24213857 (Version 1)
Quarter: 2024Q3

REPORT INFORMATION
  Report Type: Spontaneous
  Country: US (occurrence: US)
  Receive Date: 20240815
  Receipt Date: 20240815
  Transmission Date: 20241017
  Serious: Yes (Other)
  Sender: COOPERSURGICAL
  Company Number: US-COOPERSURGICAL, INC.-2024CPS001466

PATIENT
  Sex: Female
  Weight: 52.608 kg

DRUGS (1)
  1. PARAGARD T 380A [Suspect]
     Active Substance: COPPER
     Indication: Contraception
     Dosage: UNK
     Route: 065
     Dates: start: 20240409, end: 20240514

REACTIONS (5)
  - Uterine polyp [Unknown]
  - Device issue [Recovered/Resolved]
  - Device expulsion [Recovered/Resolved]
  - Discomfort [Recovered/Resolved]
  - Abnormal uterine bleeding [Recovering/Resolving]

NARRATIVE: CASE EVENT DATE: 20240101
